FAERS Safety Report 7021905-1 (Version None)
Quarter: 2010Q3

REPORT INFORMATION
  Report Type: 
  Country: None (occurrence: None)
  Receive Date: 20100930
  Receipt Date: 20100921
  Transmission Date: 20110219
  Serious: Yes (Hospitalization)
  Sender: FDA-Public Use
  Company Number: US-US-EMD SERONO, INC.-231800J10USA

PATIENT
  Sex: Female
  Weight: 64 kg

DRUGS (14)
  1. REBIF [Suspect]
     Indication: MULTIPLE SCLEROSIS
     Route: 058
     Dates: start: 20040721, end: 20090401
  2. REBIF [Suspect]
     Route: 058
  3. ENALAPRIL MALEATE AND HYDROCHLOROTHIAZIDE [Suspect]
     Indication: HYPERTENSION
     Route: 065
     Dates: end: 20090401
  4. ALEVE (CAPLET) [Suspect]
     Indication: TOOTHACHE
     Route: 065
     Dates: start: 20090401
  5. DDAVP [Suspect]
     Indication: BLADDER DISORDER
     Route: 065
     Dates: start: 20090201, end: 20090401
  6. DDAVP [Suspect]
     Route: 065
     Dates: start: 20090401
  7. ADVIL LIQUI-GELS [Suspect]
     Indication: TOOTHACHE
     Route: 065
     Dates: start: 20090401
  8. NEURONTIN [Concomitant]
     Indication: HYPOAESTHESIA
     Route: 065
  9. NEURONTIN [Concomitant]
     Indication: PARAESTHESIA
  10. FOSAMAX [Concomitant]
     Indication: OSTEOPOROSIS
     Route: 065
  11. MACROBID [Concomitant]
     Indication: DRUG THERAPY
     Route: 065
  12. GELNIQUE [Concomitant]
     Indication: BLADDER DISORDER
     Route: 065
  13. TYLENOL [Concomitant]
     Indication: DRUG THERAPY
     Route: 065
  14. ASPIRIN [Concomitant]
     Indication: DRUG THERAPY
     Route: 065

REACTIONS (4)
  - BLOOD SODIUM DECREASED [None]
  - BRAIN OEDEMA [None]
  - FEELING HOT [None]
  - HYPOAESTHESIA [None]
